FAERS Safety Report 7478098-6 (Version None)
Quarter: 2011Q2

REPORT INFORMATION
  Report Type: 
  Country: None (occurrence: None)
  Receive Date: 20110511
  Receipt Date: 20110511
  Transmission Date: 20111010
  Serious: Yes (Other)
  Sender: FDA-Public Use
  Company Number: None

PATIENT
  Age: 59 Year
  Sex: Male
  Weight: 179.1708 kg

DRUGS (1)
  1. LIPITOR [Suspect]
     Indication: DIABETES MELLITUS

REACTIONS (3)
  - MEMORY IMPAIRMENT [None]
  - COGNITIVE DISORDER [None]
  - PAIN [None]
